FAERS Safety Report 7279289-X (Version None)
Quarter: 2011Q1

REPORT INFORMATION
  Report Type: 
  Country: None (occurrence: None)
  Receive Date: 20110207
  Receipt Date: 20110131
  Transmission Date: 20110831
  Serious: Yes (Death, Hospitalization, Other)
  Sender: FDA-Public Use
  Company Number: GB-AMGEN-QUU401245

PATIENT
  Age: 70 Year
  Sex: Male

DRUGS (13)
  1. GENTAMICIN SULFATE [Concomitant]
     Dosage: UNK UNK, UNK
     Dates: start: 20090916
  2. SULFAMETHOXAZOLE AND TRIMETHOPRIM [Concomitant]
     Dosage: UNK UNK, UNK
     Dates: start: 20091001
  3. MEROPENEM [Concomitant]
     Dosage: UNK
     Dates: start: 20090919
  4. CYTARABINE [Concomitant]
     Dosage: UNK UNK, UNK
     Dates: start: 20090909, end: 20090909
  5. CYCLOPHOSPHAMIDE [Suspect]
     Dosage: UNK UNK, Q3WK
     Route: 065
     Dates: start: 20090611, end: 20090723
  6. PREDNISOLONE [Concomitant]
     Dosage: UNK UNK, UNK
     Dates: start: 20090611, end: 20090909
  7. BENZYLPENICILLIN [Concomitant]
     Dosage: UNK UNK, UNK
     Dates: start: 20090216
  8. NEULASTA [Suspect]
     Indication: CHEMOTHERAPY
     Dosage: UNK UNK, UNK
     Route: 065
  9. FLUCONAZOLE [Suspect]
     Dosage: UNK UNK, UNK
     Route: 065
     Dates: start: 20090916
  10. MITOXANTRONE HYDROCHLORIDE [Concomitant]
     Dosage: UNK UNK, Q3WK
     Dates: start: 20090611, end: 20090723
  11. ETOPOSIDE [Concomitant]
     Dosage: UNK UNK, UNK
     Dates: start: 20090909, end: 20090909
  12. RITUXIMAB [Suspect]
     Dosage: UNK UNK, Q3WK
     Route: 065
     Dates: start: 20090611, end: 20090723
  13. VINCRISTINE SULFATE [Concomitant]
     Dosage: UNK UNK, Q3WK
     Dates: start: 20090611, end: 20090723

REACTIONS (3)
  - DEATH [None]
  - PNEUMONITIS [None]
  - DRUG INTERACTION [None]
